FAERS Safety Report 24151658 (Version 1)
Quarter: 2024Q3

REPORT INFORMATION
  Report Type: Spontaneous
  Country: US (occurrence: US)
  Receive Date: 20240730
  Receipt Date: 20240730
  Transmission Date: 20241016
  Serious: No
  Sender: PERRIGO
  Company Number: US-PERRIGO-24US003773

PATIENT

DRUGS (1)
  1. LORATADINE [Suspect]
     Active Substance: LORATADINE
     Indication: Accidental exposure to product by child
     Dosage: UNKNOWN, UNKNOWN
     Route: 048
     Dates: start: 20240416, end: 20240416

REACTIONS (1)
  - Accidental exposure to product by child [Recovered/Resolved]

NARRATIVE: CASE EVENT DATE: 20240416
